FAERS Safety Report 25965689 (Version 2)
Quarter: 2025Q4

REPORT INFORMATION
  Report Type: Spontaneous
  Country: US (occurrence: US)
  Receive Date: 20251027
  Receipt Date: 20251124
  Transmission Date: 20260118
  Serious: No
  Sender: BLUEPRINT MEDICINES
  Company Number: US-Blueprint Medicines Corporation-2025-AER-02301

PATIENT
  Age: 34 Year
  Sex: Female

DRUGS (2)
  1. AYVAKIT [Suspect]
     Active Substance: AVAPRITINIB
     Indication: Systemic mastocytosis
     Route: 065
     Dates: start: 20251014
  2. AYVAKIT [Suspect]
     Active Substance: AVAPRITINIB
     Route: 065
     Dates: start: 20251119

REACTIONS (5)
  - Gastrointestinal disorder [Unknown]
  - Dehydration [Unknown]
  - Gastrointestinal sounds abnormal [Unknown]
  - Abdominal distension [Unknown]
  - Diarrhoea [Unknown]

NARRATIVE: CASE EVENT DATE: 20251115
